FAERS Safety Report 24556550 (Version 1)
Quarter: 2024Q4

REPORT INFORMATION
  Report Type: Spontaneous
  Country: US (occurrence: None)
  Receive Date: 20241027
  Receipt Date: 20241027
  Transmission Date: 20250115
  Serious: Yes (Disabling)
  Sender: Public
  Company Number: None

PATIENT
  Age: 28 Year
  Sex: Female
  Weight: 81 kg

DRUGS (2)
  1. NITROFURANTOIN MONOHYDRATE MACROCRYSTALS [Suspect]
     Active Substance: NITROFURANTOIN\NITROFURANTOIN MONOHYDRATE
     Indication: Urinary tract infection
     Dosage: OTHER QUANTITY : 1 CAPSULE(S);?FREQUENCY : EVERY 12 HOURS;?
     Route: 048
     Dates: start: 20240930, end: 20241006
  2. Copper IUD Paragard. [Concomitant]

REACTIONS (7)
  - Dry eye [None]
  - Visual impairment [None]
  - Depersonalisation/derealisation disorder [None]
  - Mood altered [None]
  - Decreased appetite [None]
  - Loss of libido [None]
  - Feeling abnormal [None]

NARRATIVE: CASE EVENT DATE: 20240930
